FAERS Safety Report 5003870-1 (Version None)
Quarter: 2006Q2

REPORT INFORMATION
  Report Type: 
  Country: None (occurrence: None)
  Receive Date: 20060515
  Receipt Date: 20060427
  Transmission Date: 20061013
  Serious: Yes (Hospitalization)
  Sender: FDA-Public Use
  Company Number: DEU-2006-0002195

PATIENT
  Age: 76 Year
  Sex: Female
  Weight: 63 kg

DRUGS (9)
  1. PALLADONE [Suspect]
     Dosage: SEE IMAGE
     Route: 048
     Dates: start: 20041117
  2. AMITRIPTYLINE HYDROCHLORIDE [Concomitant]
  3. BELOC-ZOC MITE (METOPROLOL SUCCINATE) [Concomitant]
  4. AMLODIPINE [Concomitant]
  5. PANTOPRAZOLE [Concomitant]
  6. NOVALGIN [Concomitant]
  7. MOVICOL (SODIUM BICARBONATE, POTASSIUM CHLORIDE, SODIUM CHLORIDE, MACR [Concomitant]
  8. PARACETAMOL [Concomitant]
  9. RISPERDAL [Concomitant]

REACTIONS (14)
  - COORDINATION ABNORMAL [None]
  - DEHYDRATION [None]
  - DEMENTIA [None]
  - DISORIENTATION [None]
  - GENERAL PHYSICAL HEALTH DETERIORATION [None]
  - HAEMATOMA [None]
  - HYPOGAMMAGLOBULINAEMIA [None]
  - HYPONATRAEMIA [None]
  - MOBILITY DECREASED [None]
  - OVERDOSE [None]
  - RESTLESSNESS [None]
  - SENSORY DISTURBANCE [None]
  - SLEEP WALKING [None]
  - SOMNOLENCE [None]
